FAERS Safety Report 6811340-0 (Version None)
Quarter: 2010Q2

REPORT INFORMATION
  Report Type: 
  Country: None (occurrence: None)
  Receive Date: 20100630
  Receipt Date: 20100222
  Transmission Date: 20101027
  Serious: No
  Sender: FDA-Public Use
  Company Number: US-AMGEN-KDL379679

PATIENT
  Age: 83 Year
  Sex: Male

DRUGS (3)
  1. PROCRIT [Suspect]
     Indication: MYELODYSPLASTIC SYNDROME
     Route: 058
     Dates: start: 20080901
  2. VITAMIN B-12 [Concomitant]
     Dates: start: 20090101
  3. UNSPECIFIED MEDICATION [Concomitant]
     Dates: start: 20090201

REACTIONS (2)
  - HAEMOGLOBIN DECREASED [None]
  - UNDERDOSE [None]
